FAERS Safety Report 24754884 (Version 1)
Quarter: 2024Q4

REPORT INFORMATION
  Report Type: Spontaneous
  Country: US (occurrence: US)
  Receive Date: 20241219
  Receipt Date: 20241219
  Transmission Date: 20250114
  Serious: Yes (Hospitalization, Other)
  Sender: COOPERSURGICAL
  Company Number: US-COOPERSURGICAL, INC.-2024CPS003983

PATIENT
  Age: 42 Year
  Sex: Female
  Weight: 90.703 kg

DRUGS (1)
  1. PARAGARD T 380A [Suspect]
     Active Substance: COPPER
     Dosage: UNK
     Route: 015
     Dates: start: 20150918

REACTIONS (18)
  - Ileostomy [Recovered/Resolved]
  - Ileostomy closure [Recovered/Resolved]
  - Colon operation [Unknown]
  - Renal disorder [Not Recovered/Not Resolved]
  - Diverticulum intestinal [Unknown]
  - Salpingectomy [Recovered/Resolved]
  - Female sterilisation [Recovered/Resolved]
  - Reproductive complication associated with device [Not Recovered/Not Resolved]
  - Device breakage [Not Recovered/Not Resolved]
  - Foreign body in reproductive tract [Not Recovered/Not Resolved]
  - Complication of device removal [Not Recovered/Not Resolved]
  - Abdominal pain [Unknown]
  - Post procedural complication [Unknown]
  - Emotional disorder [Unknown]
  - Abdominal discomfort [Recovered/Resolved]
  - Heavy menstrual bleeding [Not Recovered/Not Resolved]
  - Menstruation irregular [Not Recovered/Not Resolved]
  - Device expulsion [Not Recovered/Not Resolved]

NARRATIVE: CASE EVENT DATE: 20201122
